FAERS Safety Report 24703123 (Version 1)
Quarter: 2024Q4

REPORT INFORMATION
  Report Type: Spontaneous
  Country: CA (occurrence: CA)
  Receive Date: 20241205
  Receipt Date: 20241205
  Transmission Date: 20250114
  Serious: Yes (Life-Threatening, Hospitalization)
  Sender: PFIZER
  Company Number: CA-PFIZER INC-202400315593

PATIENT
  Age: 1 Year
  Sex: Male
  Weight: 10 kg

DRUGS (7)
  1. CARBOPLATIN [Suspect]
     Active Substance: CARBOPLATIN
     Indication: Transplant
     Dosage: 150 MG, 1X/DAY
     Route: 042
  2. THIOTEPA [Suspect]
     Active Substance: THIOTEPA
     Indication: Transplant
     Dosage: 100 MG, 1X/DAY
     Route: 042
  3. ACYCLOVIR [Concomitant]
     Active Substance: ACYCLOVIR
     Dosage: UNK
  4. AMLODIPINE [Concomitant]
     Active Substance: AMLODIPINE BESYLATE
     Dosage: UNK
     Route: 065
  5. FAMOTIDINE [Concomitant]
     Active Substance: FAMOTIDINE
     Dosage: UNK
  6. METOCLOPRAMIDE [Concomitant]
     Active Substance: METOCLOPRAMIDE
     Dosage: UNK
  7. URSODEOXYCHOLIC AC [Concomitant]
     Dosage: UNK

REACTIONS (6)
  - Congenital aplasia [Unknown]
  - Febrile neutropenia [Recovered/Resolved]
  - Mucosal inflammation [Unknown]
  - Pancytopenia [Unknown]
  - Rhinovirus infection [Unknown]
  - Off label use [Unknown]
